FAERS Safety Report 4555060-4 (Version None)
Quarter: 2005Q1

REPORT INFORMATION
  Report Type: 
  Country: None (occurrence: None)
  Receive Date: 20041228
  Receipt Date: 20040907
  Transmission Date: 20050727
  Serious: Yes (Other)
  Sender: FDA-Public Use
  Company Number: PHEH2004US09642

PATIENT
  Age: 76 Year
  Sex: Male

DRUGS (25)
  1. AREDIA [Suspect]
     Dosage: 90 20/VARIABLE
     Dates: start: 19970101
  2. FLUOROURACIL [Concomitant]
  3. LEUCOVORIN CALCIUM [Concomitant]
  4. CALCITRIOL [Concomitant]
  5. VIOXX [Concomitant]
  6. DIOVAN [Concomitant]
  7. TESTOSTERONE [Concomitant]
  8. LOVENOX [Concomitant]
  9. SYNTHROID [Concomitant]
  10. ACIPHEX [Concomitant]
  11. KLONOPIN [Concomitant]
  12. FUROSEMIDE [Concomitant]
  13. ADVAIR (SALMETEROL XINAFOATE) [Concomitant]
  14. CLARITIN-D (PSEUDOEPHEDRINE SULFATE) [Concomitant]
  15. WARFARIN (WARFARIN) [Concomitant]
  16. SINGULAIR [Concomitant]
  17. VIAGRA [Concomitant]
  18. LUPRON [Concomitant]
  19. FLUTAMIDE [Concomitant]
  20. CASODEX [Concomitant]
  21. PROSCAR [Concomitant]
  22. THALIDOMIDE (THALIDOMIDE) [Concomitant]
  23. VITAMIN B6 [Concomitant]
  24. AVODART [Concomitant]
  25. ANDROGEL [Concomitant]

REACTIONS (2)
  - BONE DISORDER [None]
  - OSTEONECROSIS [None]
